FAERS Safety Report 7325597-3 (Version None)
Quarter: 2011Q1

REPORT INFORMATION
  Report Type: 
  Country: None (occurrence: None)
  Receive Date: 20110302
  Receipt Date: 20110302
  Transmission Date: 20110831
  Serious: Yes (Other)
  Sender: FDA-Public Use
  Company Number: GB-ELI_LILLY_AND_COMPANY-GB201005007300

PATIENT
  Sex: Female
  Weight: 71.5 kg

DRUGS (5)
  1. SPIRIVA [Concomitant]
     Indication: CHRONIC OBSTRUCTIVE PULMONARY DISEASE
     Dosage: 1 D/F, UNK
     Route: 055
     Dates: start: 20100407
  2. ZYPREXA [Suspect]
     Dosage: 15 MG, UNK
     Route: 048
     Dates: start: 20091017
  3. HALOPERIDOL [Concomitant]
     Indication: AFFECTIVE DISORDER
     Dosage: 10 MG, UNK
     Route: 048
     Dates: start: 20000605
  4. ZYPREXA [Suspect]
     Indication: BIPOLAR DISORDER
     Dosage: 10 MG, UNKNOWN
     Route: 065
  5. TEMAZEPAM [Concomitant]

REACTIONS (10)
  - FEELING ABNORMAL [None]
  - CHRONIC OBSTRUCTIVE PULMONARY DISEASE [None]
  - HYPERHIDROSIS [None]
  - POLLAKIURIA [None]
  - WEIGHT DECREASED [None]
  - GENERAL PHYSICAL CONDITION ABNORMAL [None]
  - FEAR [None]
  - DEPRESSED MOOD [None]
  - LOSS OF CONSCIOUSNESS [None]
  - URINARY INCONTINENCE [None]
